FAERS Safety Report 18990411 (Version 1)
Quarter: 2021Q1

REPORT INFORMATION
  Report Type: Spontaneous
  Country: US (occurrence: US)
  Receive Date: 20210310
  Receipt Date: 20210310
  Transmission Date: 20210420
  Serious: No
  Sender: FDA-Public Use
  Company Number: US-SUN PHARMACEUTICAL INDUSTRIES LTD-2020R1-272646

PATIENT
  Sex: Female

DRUGS (1)
  1. CEQUA [Suspect]
     Active Substance: CYCLOSPORINE
     Indication: DRY EYE
     Dosage: UNK
     Route: 047
     Dates: start: 2020, end: 2020

REACTIONS (7)
  - Vision blurred [Not Recovered/Not Resolved]
  - Application site pain [Recovered/Resolved]
  - Product administration interrupted [Unknown]
  - Dysuria [Recovered/Resolved]
  - Eye pain [Not Recovered/Not Resolved]
  - Back pain [Recovered/Resolved]
  - Skin disorder [Recovered/Resolved]

NARRATIVE: CASE EVENT DATE: 2020
